FAERS Safety Report 24547184 (Version 1)
Quarter: 2024Q4

REPORT INFORMATION
  Report Type: Spontaneous
  Country: US (occurrence: US)
  Receive Date: 20241025
  Receipt Date: 20241025
  Transmission Date: 20250115
  Serious: No
  Sender: CHATTEM
  Company Number: US-OPELLA-2024OHG035451

PATIENT
  Age: 55 Year
  Sex: Female

DRUGS (3)
  1. ALLEGRA [Suspect]
     Active Substance: FEXOFENADINE HYDROCHLORIDE
     Indication: Pruritus
  2. ABROCITINIB [Concomitant]
     Active Substance: ABROCITINIB
     Indication: Pruritus
  3. FLUTICASONE [Concomitant]
     Active Substance: FLUTICASONE
     Indication: Pruritus

REACTIONS (3)
  - Off label use [Unknown]
  - Therapeutic response unexpected [Unknown]
  - No adverse event [Unknown]
